FAERS Safety Report 9125244 (Version 4)
Quarter: 2013Q2

REPORT INFORMATION
  Report Type: Spontaneous
  Country: IT (occurrence: IT)
  Receive Date: 20130227
  Receipt Date: 20130528
  Transmission Date: 20140414
  Serious: Yes (Hospitalization)
  Sender: FDA-Public Use
  Company Number: IT-BAXTER-2013BAX007135

PATIENT
  Age: 69 Year
  Sex: Female
  Weight: 52 kg

DRUGS (13)
  1. HOLOXAN [Suspect]
     Indication: B-CELL LYMPHOMA
     Route: 042
     Dates: start: 20130211, end: 20130211
  2. NAVELBINE [Suspect]
     Indication: B-CELL LYMPHOMA
     Route: 042
     Dates: start: 20130211, end: 20130211
  3. ACICLOVIR [Concomitant]
     Indication: PRODUCT USED FOR UNKNOWN INDICATION
     Route: 048
  4. OMEPRAZOLE [Concomitant]
     Indication: PRODUCT USED FOR UNKNOWN INDICATION
     Route: 048
  5. METHYLENE BLUE [Concomitant]
     Indication: PSYCHOMOTOR RETARDATION
     Route: 065
  6. GRANULOCYTIC GROWTH FACTOR [Concomitant]
     Indication: PRODUCT USED FOR UNKNOWN INDICATION
     Route: 065
  7. LAMIVUDINE [Concomitant]
     Indication: PRODUCT USED FOR UNKNOWN INDICATION
     Route: 065
  8. ACYCLOVIR [Concomitant]
     Indication: PRODUCT USED FOR UNKNOWN INDICATION
     Route: 065
  9. METFORMIN [Concomitant]
     Indication: PRODUCT USED FOR UNKNOWN INDICATION
     Route: 065
  10. LOSARTAN [Concomitant]
     Indication: PRODUCT USED FOR UNKNOWN INDICATION
     Route: 065
  11. LORMETAZEPAM [Concomitant]
     Indication: PRODUCT USED FOR UNKNOWN INDICATION
     Route: 065
  12. PARACETAMOL [Concomitant]
     Indication: PRODUCT USED FOR UNKNOWN INDICATION
     Route: 065
  13. LEVOFLOXACIN [Concomitant]
     Indication: PRODUCT USED FOR UNKNOWN INDICATION
     Route: 065

REACTIONS (4)
  - Hallucination, visual [Recovered/Resolved]
  - Psychomotor skills impaired [Recovered/Resolved]
  - Blood creatinine increased [Recovered/Resolved]
  - Aplasia [Recovered/Resolved]
